FAERS Safety Report 9163506 (Version 1)
Quarter: 2013Q1

REPORT INFORMATION
  Report Type: Report from Study
  Country: US (occurrence: US)
  Receive Date: 20130314
  Receipt Date: 20130314
  Transmission Date: 20140127
  Serious: Yes (Other)
  Sender: FDA-Public Use
  Company Number: US-009507513-1303USA003590

PATIENT
  Sex: Female
  Weight: 70.3 kg

DRUGS (9)
  1. VICTRELIS [Suspect]
     Indication: CHRONIC HEPATITIS C
     Dosage: UNK
     Route: 048
     Dates: start: 20120101, end: 20120222
  2. PEGASYS [Suspect]
     Indication: CHRONIC HEPATITIS C
     Dosage: 180 MICROGRAM, QW
     Route: 058
     Dates: start: 20111201, end: 20120222
  3. RIBAVIRIN [Suspect]
     Indication: CHRONIC HEPATITIS C
     Dosage: 1000 MG, QD
     Route: 048
     Dates: start: 20111201, end: 20120222
  4. RIBAVIRIN [Suspect]
     Dosage: 600 MG, QD
     Route: 048
     Dates: start: 20120225, end: 20120228
  5. IODINE-131 [Concomitant]
     Dosage: UNK
  6. SYNTHYROXINE [Concomitant]
     Indication: HYPOTHYROIDISM
     Dosage: UNK
  7. SYNTHROID [Concomitant]
     Dosage: 1 DF, QD
  8. TYLENOL EXTRA STRENGTH [Concomitant]
     Dosage: 1 DF, Q3H
     Route: 048
  9. PRILOSEC [Concomitant]
     Dosage: 20 MG, SUSTAINED RELEASE
     Route: 048

REACTIONS (11)
  - Hypothyroidism [Unknown]
  - Chest pain [Unknown]
  - Chest discomfort [Unknown]
  - Dyspnoea [Unknown]
  - Cough [Unknown]
  - Pruritus [Unknown]
  - Decreased appetite [Unknown]
  - Dry mouth [Unknown]
  - Fatigue [Unknown]
  - Nausea [Unknown]
  - Haemoglobin decreased [Unknown]
